FAERS Safety Report 7057617-8 (Version None)
Quarter: 2010Q4

REPORT INFORMATION
  Report Type: 
  Country: None (occurrence: None)
  Receive Date: 20101022
  Receipt Date: 20101013
  Transmission Date: 20110411
  Serious: Yes (Life-Threatening, Hospitalization, Other)
  Sender: FDA-Public Use
  Company Number: DE-ROCHE-733918

PATIENT
  Age: 65 Year
  Sex: Female
  Weight: 68 kg

DRUGS (6)
  1. CAPECITABINE [Suspect]
     Route: 065
     Dates: start: 20081001, end: 20090301
  2. TRASTUZUMAB [Suspect]
     Route: 065
     Dates: start: 20060301, end: 20060701
  3. TRASTUZUMAB [Suspect]
     Route: 065
     Dates: start: 20060701, end: 20081001
  4. DOCETAXEL [Suspect]
     Route: 065
     Dates: start: 20060301, end: 20060701
  5. LAPATINIB [Suspect]
     Route: 065
     Dates: start: 20081001, end: 20090301
  6. LAPATINIB [Suspect]
     Route: 065
     Dates: start: 20090301, end: 20090801

REACTIONS (2)
  - ACUTE RESPIRATORY DISTRESS SYNDROME [None]
  - DIARRHOEA HAEMORRHAGIC [None]
